FAERS Safety Report 14553210 (Version 5)
Quarter: 2019Q1

REPORT INFORMATION
  Report Type: Report from Study
  Country: None (occurrence: US)
  Receive Date: 20180220
  Receipt Date: 20190111
  Transmission Date: 20190417
  Serious: Yes (Hospitalization, Other)
  Sender: FDA-Public Use
  Company Number: US-ABBVIE-18K-163-2261159-00

PATIENT
  Age: 39 Year
  Sex: Male
  Weight: 47.22 kg

DRUGS (28)
  1. DUOPA [Suspect]
     Active Substance: CARBIDOPA\LEVODOPA
     Indication: PARKINSON^S DISEASE
     Dosage: DOSE DECREASED
     Route: 050
  2. PROPANOLOL [Concomitant]
     Active Substance: PROPRANOLOL HYDROCHLORIDE
     Indication: TREMOR
  3. PROTONIX [Concomitant]
     Active Substance: PANTOPRAZOLE SODIUM
     Indication: OESOPHAGEAL IRRITATION
     Route: 048
     Dates: start: 20171102
  4. LINZESS [Concomitant]
     Active Substance: LINACLOTIDE
     Indication: CONSTIPATION
     Route: 048
     Dates: start: 20171102
  5. MIRALAX [Concomitant]
     Active Substance: POLYETHYLENE GLYCOL 3350
     Indication: CONSTIPATION
     Route: 048
     Dates: start: 20171102
  6. DUOPA [Suspect]
     Active Substance: CARBIDOPA\LEVODOPA
     Route: 050
     Dates: start: 201711
  7. DUOPA [Suspect]
     Active Substance: CARBIDOPA\LEVODOPA
     Route: 050
     Dates: start: 20171113
  8. DUOPA [Suspect]
     Active Substance: CARBIDOPA\LEVODOPA
     Route: 050
     Dates: start: 201801
  9. DUOPA [Suspect]
     Active Substance: CARBIDOPA\LEVODOPA
     Route: 050
     Dates: start: 20180212
  10. TEGRETOL [Concomitant]
     Active Substance: CARBAMAZEPINE
     Indication: SEIZURE
  11. AZILECT [Concomitant]
     Active Substance: RASAGILINE MESYLATE
     Indication: PARKINSON^S DISEASE
  12. VIMPAT [Concomitant]
     Active Substance: LACOSAMIDE
     Indication: SEIZURE
     Route: 048
     Dates: start: 20180824
  13. SUPPOSITORY ADULT SUPP RECT [Concomitant]
     Indication: PRODUCT USED FOR UNKNOWN INDICATION
     Route: 054
     Dates: start: 20171102
  14. DUOPA [Suspect]
     Active Substance: CARBIDOPA\LEVODOPA
     Route: 050
     Dates: start: 20180119
  15. KLONOPIN [Concomitant]
     Active Substance: CLONAZEPAM
     Indication: SEIZURE
     Route: 048
     Dates: start: 20181108
  16. DUOPA [Suspect]
     Active Substance: CARBIDOPA\LEVODOPA
     Route: 050
     Dates: start: 20171109
  17. CARBIDOPA/LEVODOPA [Concomitant]
     Active Substance: CARBIDOPA\LEVODOPA
     Indication: PARKINSON^S DISEASE
     Route: 048
     Dates: start: 20171102
  18. AMANTADINE ER [Concomitant]
     Indication: PARKINSON^S DISEASE
     Route: 048
     Dates: start: 20170505
  19. TEGRETOL [Concomitant]
     Active Substance: CARBAMAZEPINE
     Indication: SEIZURE
  20. DUOPA [Suspect]
     Active Substance: CARBIDOPA\LEVODOPA
     Route: 050
     Dates: start: 20180212
  21. AMANTADINE. [Concomitant]
     Active Substance: AMANTADINE HYDROCHLORIDE
     Indication: PARKINSON^S DISEASE
     Route: 048
  22. LINESSA 21 [Concomitant]
     Active Substance: DESOGESTREL\ETHINYL ESTRADIOL
     Indication: CONSTIPATION
  23. PROBIOTIC [Concomitant]
     Active Substance: PROBIOTICS NOS
     Indication: SUPPLEMENTATION THERAPY
     Route: 048
     Dates: start: 20170505
  24. DIAZEPAM. [Concomitant]
     Active Substance: DIAZEPAM
     Indication: TREMOR
     Route: 048
     Dates: start: 20171102
  25. VALIUM [Concomitant]
     Active Substance: DIAZEPAM
     Indication: TREMOR
  26. GOCOVRI [Concomitant]
     Active Substance: AMANTADINE
     Indication: PARKINSON^S DISEASE
  27. APTIOM [Suspect]
     Active Substance: ESLICARBAZEPINE ACETATE
     Indication: PRODUCT USED FOR UNKNOWN INDICATION
     Route: 065
     Dates: start: 201812, end: 201901
  28. SENOKOT [Concomitant]
     Active Substance: SENNOSIDES
     Indication: PRODUCT USED FOR UNKNOWN INDICATION
     Route: 048
     Dates: start: 20171102

REACTIONS (32)
  - Unresponsive to stimuli [Recovered/Resolved]
  - Clostridium difficile infection [Not Recovered/Not Resolved]
  - Hallucination [Not Recovered/Not Resolved]
  - Device dislocation [Recovered/Resolved]
  - Seizure [Recovered/Resolved]
  - Seizure [Recovered/Resolved]
  - Ileus [Not Recovered/Not Resolved]
  - Blood sodium decreased [Recovered/Resolved]
  - Blood creatinine increased [Recovered/Resolved]
  - Seizure [Recovering/Resolving]
  - Haemoglobin decreased [Recovering/Resolving]
  - Insomnia [Unknown]
  - Somnolence [Unknown]
  - Intestinal obstruction [Recovered/Resolved]
  - Sepsis [Recovered/Resolved]
  - Blood lactic acid increased [Unknown]
  - Tremor [Not Recovered/Not Resolved]
  - Blood potassium increased [Recovered/Resolved]
  - Device connection issue [Unknown]
  - Ileus [Recovered/Resolved]
  - Intestinal obstruction [Not Recovered/Not Resolved]
  - Sepsis [Unknown]
  - Dyskinesia [Unknown]
  - Blood potassium increased [Recovered/Resolved]
  - Malaise [Unknown]
  - Clostridium difficile infection [Recovered/Resolved]
  - Tremor [Recovered/Resolved]
  - Small intestinal obstruction [Recovered/Resolved]
  - Muscle rigidity [Unknown]
  - Septic shock [Recovered/Resolved]
  - Blood creatinine increased [Recovered/Resolved]
  - Agitation [Not Recovered/Not Resolved]

NARRATIVE: CASE EVENT DATE: 2018
